FAERS Safety Report 24692575 (Version 3)
Quarter: 2025Q3

REPORT INFORMATION
  Report Type: Report from Study
  Country: US (occurrence: US)
  Receive Date: 20241203
  Receipt Date: 20250803
  Transmission Date: 20251020
  Serious: Yes (Other)
  Sender: ALEXION PHARMACEUTICALS
  Company Number: US-AstraZeneca-CH-00750645A

PATIENT
  Age: 49 Year
  Sex: Female

DRUGS (1)
  1. STRENSIQ [Suspect]
     Active Substance: ASFOTASE ALFA
     Indication: Hypophosphatasia
     Route: 065

REACTIONS (5)
  - Lupus-like syndrome [Unknown]
  - Hypersensitivity [Unknown]
  - Injection site vesicles [Unknown]
  - Injection site rash [Unknown]
  - Inflammation [Unknown]

NARRATIVE: CASE EVENT DATE: 20240601
